FAERS Safety Report 13902018 (Version 1)
Quarter: 2017Q3

REPORT INFORMATION
  Report Type: Spontaneous
  Country: US (occurrence: US)
  Receive Date: 20170824
  Receipt Date: 20170824
  Transmission Date: 20171127
  Serious: No
  Sender: FDA-Public Use
  Company Number: US-ROCHE-1133899

PATIENT
  Age: 49 Year
  Sex: Female

DRUGS (3)
  1. DECADRON [Concomitant]
     Active Substance: DEXAMETHASONE
     Route: 065
  2. TAXOL [Concomitant]
     Active Substance: PACLITAXEL
     Route: 065
     Dates: start: 200005
  3. HERCEPTIN [Suspect]
     Active Substance: TRASTUZUMAB
     Indication: BREAST CANCER
     Route: 065
     Dates: start: 200005

REACTIONS (4)
  - Fatigue [Unknown]
  - Weight increased [Unknown]
  - Anaemia [Unknown]
  - Alopecia [Unknown]

NARRATIVE: CASE EVENT DATE: 20000703
